FAERS Safety Report 26202404 (Version 1)
Quarter: 2025Q4

REPORT INFORMATION
  Report Type: Spontaneous
  Country: US (occurrence: US)
  Receive Date: 20251226
  Receipt Date: 20251226
  Transmission Date: 20260118
  Serious: No
  Sender: FDC LIMITED
  Company Number: US-FDC-2025USSPO00490

PATIENT
  Sex: Female

DRUGS (2)
  1. TIMOLOL MALEATE [Suspect]
     Active Substance: TIMOLOL MALEATE
     Indication: Glaucoma
     Route: 047
  2. TIMOLOL MALEATE [Suspect]
     Active Substance: TIMOLOL MALEATE
     Indication: Intraocular pressure increased

REACTIONS (1)
  - Eye irritation [Recovered/Resolved]
